FAERS Safety Report 12962339 (Version 1)
Quarter: 2016Q4

REPORT INFORMATION
  Report Type: Spontaneous
  Country: US (occurrence: US)
  Receive Date: 20161121
  Receipt Date: 20161121
  Transmission Date: 20170207
  Serious: No
  Sender: FDA-Public Use
  Company Number: US-ALLERGAN-1658877US

PATIENT
  Sex: Female

DRUGS (1)
  1. COMBIGAN [Suspect]
     Active Substance: BRIMONIDINE TARTRATE\TIMOLOL MALEATE
     Indication: GLAUCOMA
     Dosage: 2 GTT, BID
     Route: 047

REACTIONS (6)
  - Lower respiratory tract infection [Not Recovered/Not Resolved]
  - Drug prescribing error [Unknown]
  - Underdose [Unknown]
  - Headache [Recovered/Resolved]
  - Intraocular pressure increased [Recovered/Resolved]
  - Product size issue [Unknown]
